FAERS Safety Report 6130264-8 (Version None)
Quarter: 2009Q1

REPORT INFORMATION
  Report Type: 
  Country: None (occurrence: None)
  Receive Date: 20090324
  Receipt Date: 20090318
  Transmission Date: 20090719
  Serious: Yes (Hospitalization)
  Sender: FDA-Public Use
  Company Number: PHHY2009JP09932

PATIENT
  Sex: Female
  Weight: 80 kg

DRUGS (2)
  1. DIOVAN [Suspect]
     Indication: HYPERTENSION
     Dosage: 80 MG, QD
     Route: 048
     Dates: start: 20071127, end: 20080122
  2. CRESTOR [Concomitant]
     Dosage: 2.5 MG/H, UNK
     Route: 048

REACTIONS (2)
  - LARGE INTESTINE CARCINOMA [None]
  - LARGE INTESTINE PERFORATION [None]
